FAERS Safety Report 13288721 (Version 2)
Quarter: 2017Q2

REPORT INFORMATION
  Report Type: Spontaneous
  Country: US (occurrence: US)
  Receive Date: 20170302
  Receipt Date: 20170421
  Transmission Date: 20170830
  Serious: No
  Sender: FDA-Public Use
  Company Number: US-PFIZER INC-2017087773

PATIENT
  Age: 67 Year
  Sex: Female
  Weight: 153 kg

DRUGS (6)
  1. CARVEDILOL. [Concomitant]
     Active Substance: CARVEDILOL
     Indication: CARDIAC DISORDER
     Dosage: 12.5 MG, 2X/DAY
  2. ULORIC [Concomitant]
     Active Substance: FEBUXOSTAT
     Indication: GOUT
     Dosage: 80 MG, UNK
  3. FASLODEX [Concomitant]
     Active Substance: FULVESTRANT
     Indication: NEOPLASM MALIGNANT
     Dosage: 2 DF, MONTHLY
  4. IBRANCE [Suspect]
     Active Substance: PALBOCICLIB
     Indication: NEOPLASM MALIGNANT
     Dosage: 125 MG, CYCLIC (21 DAYS ON AND 7 DAYS OFF)
     Route: 048
  5. COSENTYX [Concomitant]
     Active Substance: SECUKINUMAB
     Indication: PSORIASIS
     Dosage: 300, MONTHLY
  6. XGEVA [Concomitant]
     Active Substance: DENOSUMAB
     Indication: BONE CANCER
     Dosage: UNK UNK, MONTHLY

REACTIONS (1)
  - White blood cell count decreased [Not Recovered/Not Resolved]

NARRATIVE: CASE EVENT DATE: 20170223
